FAERS Safety Report 11874264 (Version 1)
Quarter: 2015Q4

REPORT INFORMATION
  Report Type: Report from Study
  Country: TR (occurrence: TR)
  Receive Date: 20151229
  Receipt Date: 20151229
  Transmission Date: 20160305
  Serious: Yes (Other)
  Sender: FDA-Public Use
  Company Number: TR-SUN PHARMACEUTICAL INDUSTRIES LTD-2015RR-108427

PATIENT

DRUGS (3)
  1. FLURBIPROFEN. [Suspect]
     Active Substance: FLURBIPROFEN
     Indication: ALLERGY TEST
     Dosage: 10, 25, 75, 100 MG
     Route: 048
  2. BUDESONIDE. [Concomitant]
     Active Substance: BUDESONIDE
     Indication: ASTHMA
     Dosage: 640 ?G, UNK
     Route: 065
  3. NIMESULIDE [Suspect]
     Active Substance: NIMESULIDE
     Indication: ALLERGY TEST
     Dosage: 25, 75, 100 MG
     Route: 048

REACTIONS (7)
  - Wheezing [Unknown]
  - Forced expiratory volume decreased [Unknown]
  - Dyspnoea [Unknown]
  - Urticaria [Unknown]
  - Hypotension [Unknown]
  - Rhinorrhoea [Unknown]
  - Angioedema [Unknown]
